FAERS Safety Report 24583434 (Version 1)
Quarter: 2024Q4

REPORT INFORMATION
  Report Type: Spontaneous
  Country: FR (occurrence: FR)
  Receive Date: 20241106
  Receipt Date: 20241106
  Transmission Date: 20250114
  Serious: Yes (Other)
  Sender: AUROBINDO
  Company Number: FR-AFSSAPS-NT2024001237

PATIENT
  Age: 28 Year
  Sex: Female
  Weight: 82.5 kg

DRUGS (3)
  1. OLANZAPINE [Suspect]
     Active Substance: OLANZAPINE
     Indication: Anxiety
     Dosage: 7.5 MILLIGRAM, EVERY OTHER DAY,  1 DAY OUT OF 2
     Route: 048
     Dates: start: 20220525, end: 20240527
  2. OLANZAPINE [Suspect]
     Active Substance: OLANZAPINE
     Dosage: 10 MILLIGRAM, EVERY OTHER DAY
     Route: 048
     Dates: start: 20220525, end: 20240527
  3. ETIFOXINE [Concomitant]
     Active Substance: ETIFOXINE
     Indication: Product used for unknown indication
     Dosage: UNK
     Route: 048
     Dates: start: 2021

REACTIONS (1)
  - Diabetes mellitus [Recovering/Resolving]

NARRATIVE: CASE EVENT DATE: 20240301
